FAERS Safety Report 7346106-9 (Version None)
Quarter: 2011Q1

REPORT INFORMATION
  Report Type: 
  Country: None (occurrence: None)
  Receive Date: 20110311
  Receipt Date: 20110302
  Transmission Date: 20110831
  Serious: Yes (Other)
  Sender: FDA-Public Use
  Company Number: US-BAYER-2011-019683

PATIENT
  Sex: Female

DRUGS (1)
  1. BETASERON [Suspect]
     Indication: MULTIPLE SCLEROSIS
     Dosage: 0.25 MG QOD
     Route: 058
     Dates: start: 20110201, end: 20110101

REACTIONS (3)
  - MOBILITY DECREASED [None]
  - QUADRIPLEGIA [None]
  - HEADACHE [None]
